FAERS Safety Report 14360167 (Version 2)
Quarter: 2018Q1

REPORT INFORMATION
  Report Type: Spontaneous
  Country: US (occurrence: US)
  Receive Date: 20180106
  Receipt Date: 20180118
  Transmission Date: 20180509
  Serious: Yes (Life-Threatening, Hospitalization, Other)
  Sender: FDA-Public Use
  Company Number: US-AUROBINDO-AUR-APL-2018-001015

PATIENT
  Age: 10 Day
  Sex: Male
  Weight: 3.2 kg

DRUGS (13)
  1. AMIODARONE HYDROCHLORIDE. [Suspect]
     Active Substance: AMIODARONE HYDROCHLORIDE
     Indication: JUNCTIONAL ECTOPIC TACHYCARDIA
     Dosage: 5 MG/KG, UNK
  2. DEXMEDETOMIDINE. [Suspect]
     Active Substance: DEXMEDETOMIDINE
     Indication: SEDATION
     Dosage: 1 ?G/KG, UNK
     Route: 042
  3. DEXMEDETOMIDINE. [Suspect]
     Active Substance: DEXMEDETOMIDINE
     Route: 042
  4. ALBUMIN [Concomitant]
     Active Substance: ALBUMIN HUMAN
     Indication: JUNCTIONAL ECTOPIC TACHYCARDIA
     Dosage: (10ML/KG)
  5. VASOPRESSIN. [Concomitant]
     Active Substance: VASOPRESSIN
     Dosage: 0.0006 U/KG ()
  6. MAGNESIUM [Concomitant]
     Active Substance: MAGNESIUM
     Indication: ARRHYTHMIA SUPRAVENTRICULAR
  7. EPINEPHRINE. [Concomitant]
     Active Substance: EPINEPHRINE
     Indication: ARRHYTHMIA SUPRAVENTRICULAR
     Route: 042
  8. EPINEPHRINE. [Concomitant]
     Active Substance: EPINEPHRINE
     Route: 042
  9. GLYCERYL TRINITRATE [Concomitant]
     Active Substance: NITROGLYCERIN
     Indication: ARRHYTHMIA SUPRAVENTRICULAR
     Route: 042
  10. DEXMEDETOMIDINE. [Suspect]
     Active Substance: DEXMEDETOMIDINE
  11. MILRINONE [Concomitant]
     Active Substance: MILRINONE
     Indication: ARRHYTHMIA SUPRAVENTRICULAR
     Route: 042
  12. VASOPRESSIN. [Concomitant]
     Active Substance: VASOPRESSIN
     Indication: JUNCTIONAL ECTOPIC TACHYCARDIA
     Dosage: 0.0003 U/KG ()
  13. AMIODARONE HYDROCHLORIDE. [Suspect]
     Active Substance: AMIODARONE HYDROCHLORIDE
     Dosage: BOLUS OF 5 MG/KG TO BE INFUSED OVER 60 MINUTES

REACTIONS (3)
  - Bradycardia [Unknown]
  - Cough [Unknown]
  - Cardiac arrest neonatal [Unknown]
